FAERS Safety Report 7659991-8 (Version None)
Quarter: 2011Q3

REPORT INFORMATION
  Report Type: 
  Country: None (occurrence: None)
  Receive Date: 20110805
  Receipt Date: 20110718
  Transmission Date: 20111222
  Serious: No
  Sender: FDA-Public Use
  Company Number: US-BAYER-2011-062640

PATIENT
  Age: 53 Year
  Sex: Female

DRUGS (1)
  1. MAGNEVIST [Suspect]
     Dosage: 14 ML, UNK

REACTIONS (4)
  - EYE PRURITUS [None]
  - EYE IRRITATION [None]
  - EYE SWELLING [None]
  - URTICARIA [None]
